FAERS Safety Report 16287222 (Version 1)
Quarter: 2019Q2

REPORT INFORMATION
  Report Type: Spontaneous
  Country: US (occurrence: US)
  Receive Date: 20190508
  Receipt Date: 20190508
  Transmission Date: 20190711
  Serious: No
  Sender: FDA-Public Use
  Company Number: US-GLAXOSMITHKLINE-US2019GSK032456

PATIENT
  Age: 65 Year
  Sex: Female

DRUGS (2)
  1. ACITRETIN. [Suspect]
     Active Substance: ACITRETIN
     Dosage: 20 MG, QOD
  2. ACITRETIN. [Suspect]
     Active Substance: ACITRETIN
     Indication: PRODUCT USED FOR UNKNOWN INDICATION
     Dosage: 10 MG, QOD

REACTIONS (2)
  - Intentional product misuse [Unknown]
  - Adverse drug reaction [Unknown]
